FAERS Safety Report 7039865-6 (Version None)
Quarter: 2010Q3

REPORT INFORMATION
  Report Type: 
  Country: None (occurrence: None)
  Receive Date: 20100929
  Receipt Date: 20100614
  Transmission Date: 20110219
  Serious: Yes (Other)
  Sender: FDA-Public Use
  Company Number: US-WYE-H16054910

PATIENT
  Age: 40 Year
  Sex: Female
  Weight: 95.34 kg

DRUGS (4)
  1. PRISTIQ [Suspect]
     Indication: ANXIETY
     Dosage: 50 MG 1X PER 1 DAY
     Dates: start: 20100605, end: 20100610
  2. PRISTIQ [Suspect]
     Indication: DEPRESSION
     Dosage: 50 MG 1X PER 1 DAY
     Dates: start: 20100605, end: 20100610
  3. BENAZEPRIL HYDROCHLORIDE [Concomitant]
  4. ZYRTEC [Concomitant]

REACTIONS (2)
  - NAUSEA [None]
  - VOMITING [None]
